FAERS Safety Report 23312041 (Version 1)
Quarter: 2023Q4

REPORT INFORMATION
  Report Type: Spontaneous
  Country: FR (occurrence: FR)
  Receive Date: 20231219
  Receipt Date: 20231219
  Transmission Date: 20240109
  Serious: Yes (Other)
  Sender: FDA-Public Use
  Company Number: None

PATIENT
  Age: 10 Month

DRUGS (2)
  1. AMOXICILLIN [Suspect]
     Active Substance: AMOXICILLIN
     Indication: Ear infection
     Dosage: DOSAGE FOR 10KG (APPROXIMATELY 800MG)
     Route: 048
     Dates: start: 202207, end: 202207
  2. ADVIL [Concomitant]
     Active Substance: IBUPROFEN
     Dosage: DOSAGE: 20 MG/ML CHILDREN AND INFANTS, ORAL SUSPENSION IN BOTTLE
     Route: 048

REACTIONS (1)
  - Serum sickness [Recovered/Resolved]

NARRATIVE: CASE EVENT DATE: 20220701
